FAERS Safety Report 13640199 (Version 1)
Quarter: 2017Q2

REPORT INFORMATION
  Report Type: Spontaneous
  Country: SE (occurrence: SE)
  Receive Date: 20170609
  Receipt Date: 20170609
  Transmission Date: 20170830
  Serious: Yes (Hospitalization)
  Sender: FDA-Public Use
  Company Number: PHHY2017SE082129

PATIENT
  Sex: Female

DRUGS (2)
  1. VENLAFAXIN HEXAL [Suspect]
     Active Substance: VENLAFAXINE HYDROCHLORIDE
     Dosage: 150 MG, UNK
     Route: 065
  2. VENLAFAXIN HEXAL [Suspect]
     Active Substance: VENLAFAXINE HYDROCHLORIDE
     Indication: FEELING ABNORMAL
     Dosage: 2.6 G, UNK
     Route: 065
     Dates: start: 20141223

REACTIONS (3)
  - No adverse event [Recovered/Resolved with Sequelae]
  - Toxicity to various agents [Recovered/Resolved with Sequelae]
  - Intentional overdose [Recovered/Resolved with Sequelae]
